FAERS Safety Report 21571434 (Version 3)
Quarter: 2022Q4

REPORT INFORMATION
  Report Type: Report from Study
  Country: JP (occurrence: JP)
  Receive Date: 20221109
  Receipt Date: 20221124
  Transmission Date: 20230112
  Serious: Yes (Hospitalization)
  Sender: FDA-Public Use
  Company Number: JP-002147023-NVSJ2022JP100590

PATIENT
  Age: 58 Year
  Sex: Male
  Weight: 76.2 kg

DRUGS (8)
  1. INCLISIRAN [Suspect]
     Active Substance: INCLISIRAN
     Indication: Disease risk factor
     Dosage: 100 MG
     Route: 058
     Dates: start: 20210916, end: 20220606
  2. INCLISIRAN [Suspect]
     Active Substance: INCLISIRAN
     Indication: Low density lipoprotein increased
  3. TELMISARTAN [Concomitant]
     Active Substance: TELMISARTAN
     Indication: Hypertension
     Dosage: 20 MG
     Route: 048
     Dates: start: 20170914
  4. ATORVASTATIN CALCIUM\EZETIMIBE [Concomitant]
     Active Substance: ATORVASTATIN CALCIUM\EZETIMIBE
     Indication: Dyslipidaemia
     Dosage: 10 MG/20 MG/DAY
     Route: 048
     Dates: start: 20180809
  5. ASPIRIN [Concomitant]
     Active Substance: ASPIRIN
     Indication: General physical condition
     Dosage: 100 MG
     Route: 048
     Dates: start: 20170823
  6. ESOMEPRAZOLE MAGNESIUM [Concomitant]
     Active Substance: ESOMEPRAZOLE MAGNESIUM
     Indication: General physical condition
     Dosage: 20 MG
     Route: 048
     Dates: start: 20171011
  7. CARVEDILOL [Concomitant]
     Active Substance: CARVEDILOL
     Indication: Cardiac failure
     Dosage: 2.5 MG
     Route: 048
     Dates: start: 20171109
  8. ACETAMINOPHEN [Concomitant]
     Active Substance: ACETAMINOPHEN
     Indication: Pyrexia
     Dosage: 600 MG
     Route: 048
     Dates: start: 20221017

REACTIONS (1)
  - Syncope [Recovering/Resolving]

NARRATIVE: CASE EVENT DATE: 20221017
